FAERS Safety Report 8471743-8 (Version None)
Quarter: 2012Q2

REPORT INFORMATION
  Report Type: 
  Country: None (occurrence: None)
  Receive Date: 20120627
  Receipt Date: 20120613
  Transmission Date: 20120825
  Serious: Yes (Other)
  Sender: FDA-Public Use
  Company Number: FR-FRI-1000036602

PATIENT
  Age: 69 Year
  Sex: Male

DRUGS (1)
  1. ESCITALOPRAM [Suspect]
     Indication: DEPRESSION
     Dosage: 10 MG
     Route: 048
     Dates: start: 20120101

REACTIONS (4)
  - RIB FRACTURE [None]
  - SPEECH DISORDER [None]
  - FALL [None]
  - VERTIGO [None]
